FAERS Safety Report 10524252 (Version 1)
Quarter: 2014Q4

REPORT INFORMATION
  Report Type: Spontaneous
  Country: US (occurrence: None)
  Receive Date: 20141015
  Receipt Date: 20141015
  Transmission Date: 20150528
  Serious: No
  Sender: FDA-Public Use
  Company Number: None

PATIENT
  Age: 55 Year
  Sex: Male

DRUGS (1)
  1. OXYCODONE IMMEDIATE RELEASE [Suspect]
     Active Substance: OXYCODONE
     Route: 048
     Dates: start: 20140328, end: 20141014

REACTIONS (3)
  - Product substitution issue [None]
  - No therapeutic response [None]
  - Product quality issue [None]

NARRATIVE: CASE EVENT DATE: 20140328
